FAERS Safety Report 17889510 (Version 1)
Quarter: 2020Q2

REPORT INFORMATION
  Report Type: Spontaneous
  Country: ES (occurrence: ES)
  Receive Date: 20200612
  Receipt Date: 20200612
  Transmission Date: 20200714
  Serious: Yes (Hospitalization)
  Sender: FDA-Public Use
  Company Number: ES-TEVA-2020-ES-1247454

PATIENT
  Age: 86 Year
  Sex: Female

DRUGS (7)
  1. PARACETAMOL 1.000 MG COMPRIMIDO [Concomitant]
  2. ENEAS 10 MG/20 MG COMPRIMIDOS , 30 COMPRIMIDOS [Suspect]
     Active Substance: ENALAPRIL MALEATE\NITRENDIPINE
     Indication: NEPHROPATHY
     Dosage: 10 MG
     Dates: start: 20070609
  3. IBUPROFENO 600 MG COMPRIMIDO [Suspect]
     Active Substance: IBUPROFEN
     Indication: ARTHRALGIA
     Dosage: 600 MG
     Route: 048
     Dates: start: 20191211
  4. AMERIDE 5 MG/50 MG COMPRIMIDOS, 60 COMPRIMIDOS [Suspect]
     Active Substance: AMILORIDE HYDROCHLORIDE\HYDROCHLOROTHIAZIDE
     Indication: HYPERTENSIVE NEPHROPATHY
     Dosage: 5 MG
     Dates: start: 20070609
  5. TIAMAZOL 5 MG COMPRIMIDO [Concomitant]
  6. HIDROXIZINA 25 MG COMPRIMIDO [Suspect]
     Active Substance: HYDROXYZINE HYDROCHLORIDE
     Indication: PRURITUS
     Dosage: 25 MG
     Route: 048
     Dates: start: 20181212
  7. ETORICOXIB 30 MG COMPRIMIDO [Suspect]
     Active Substance: ETORICOXIB
     Indication: BACK PAIN
     Dosage: 30 MG
     Route: 048
     Dates: start: 20200523

REACTIONS (3)
  - Acute coronary syndrome [Not Recovered/Not Resolved]
  - Cardiac failure [Recovering/Resolving]
  - Acute kidney injury [Recovering/Resolving]

NARRATIVE: CASE EVENT DATE: 20200525
